FAERS Safety Report 12578806 (Version 1)
Quarter: 2016Q3

REPORT INFORMATION
  Report Type: Spontaneous
  Country: US (occurrence: None)
  Receive Date: 20160720
  Receipt Date: 20160720
  Transmission Date: 20161109
  Serious: No
  Sender: FDA-Public Use
  Company Number: None

PATIENT
  Age: 47 Year
  Sex: Female

DRUGS (1)
  1. HARVONI [Suspect]
     Active Substance: LEDIPASVIR\SOFOSBUVIR
     Indication: CHRONIC HEPATITIS C
     Dosage: 90/400MG QD ORAL
     Route: 048
     Dates: start: 20160512

REACTIONS (3)
  - Vertigo [None]
  - Vision blurred [None]
  - Intraocular pressure test abnormal [None]

NARRATIVE: CASE EVENT DATE: 20160614
